FAERS Safety Report 8394472-8 (Version None)
Quarter: 2012Q2

REPORT INFORMATION
  Report Type: 
  Country: None (occurrence: None)
  Receive Date: 20120530
  Receipt Date: 20090617
  Transmission Date: 20120825
  Serious: No
  Sender: FDA-Public Use
  Company Number: US-PFIZER INC-2009199640

PATIENT
  Sex: Female
  Weight: 64.9 kg

DRUGS (2)
  1. VENLAFAXINE HYDROCHLORIDE [Concomitant]
     Dosage: UNK
  2. CHANTIX [Suspect]
     Indication: SMOKING CESSATION THERAPY
     Dosage: 0.5 MG, 1X/DAY
     Dates: start: 20090407, end: 20090410

REACTIONS (3)
  - VOMITING [None]
  - FLATULENCE [None]
  - ABDOMINAL PAIN UPPER [None]
